FAERS Safety Report 5796219-8 (Version None)
Quarter: 2008Q3

REPORT INFORMATION
  Report Type: 
  Country: None (occurrence: None)
  Receive Date: 20080701
  Receipt Date: 20080624
  Transmission Date: 20090109
  Serious: Yes (Life-Threatening)
  Sender: FDA-Public Use
  Company Number: JP-ASTRAZENECA-2008AP04211

PATIENT
  Age: 48 Year
  Sex: Female
  Weight: 114.9 kg

DRUGS (1)
  1. MEROPEN [Suspect]
     Indication: FURUNCLE
     Route: 041
     Dates: start: 20080125, end: 20080128

REACTIONS (4)
  - BETA 2 MICROGLOBULIN URINE INCREASED [None]
  - HYPERGLYCAEMIA [None]
  - HYPERKALAEMIA [None]
  - NEPHROPATHY TOXIC [None]
